FAERS Safety Report 3311618 (Version 1)
Quarter: 2020Q3

REPORT INFORMATION
  Report Type: Spontaneous
  Country: US (occurrence: None)
  Receive Date: 19990715
  Receipt Date: 19990715
  Transmission Date: 20201104
  Serious: Yes (Other)
  Sender: FDA-Public Use
  Company Number: 9921785

PATIENT
  Age: 75 Year
  Sex: Male
  Weight: 91 kg

DRUGS (17)
  1. ALATROFLOXACIN MESYLATE. [Suspect]
     Active Substance: ALATROFLOXACIN MESYLATE
     Indication: SEPSIS
     Dosage: 200.00 MG TOTAL:DAILY:INTRANVEOUS
     Route: 042
     Dates: start: 19990507
  2. BUMEX [Concomitant]
     Active Substance: BUMETANIDE
  3. LORAZEPAM. [Concomitant]
     Active Substance: LORAZEPAM
  4. PROCHLORPERAZINE. [Concomitant]
     Active Substance: PROCHLORPERAZINE
  5. ACETAZOLAMIDE. [Concomitant]
     Active Substance: ACETAZOLAMIDE
  6. POTASSIUM CHLORIDE. [Concomitant]
     Active Substance: POTASSIUM CHLORIDE
  7. WARFARIN SODIUM. [Concomitant]
     Active Substance: WARFARIN SODIUM
  8. INSULIN NOS [Concomitant]
     Active Substance: INSULIN NOS
  9. MIDAZOLAM HYDROCHLORIDE. [Concomitant]
     Active Substance: MIDAZOLAM HYDROCHLORIDE
  10. INAPSINE [Concomitant]
     Active Substance: DROPERIDOL
  11. ZOFRAN [Concomitant]
     Active Substance: ONDANSETRON HYDROCHLORIDE
  12. OMEPRAZOLE. [Concomitant]
     Active Substance: OMEPRAZOLE
  13. HEPARIN [Concomitant]
     Active Substance: HEPARIN SODIUM
  14. DIGOXIN. [Concomitant]
     Active Substance: DIGOXIN
  15. NITROGLYCERIN. [Concomitant]
     Active Substance: NITROGLYCERIN
  16. HALOPERIDOL. [Concomitant]
     Active Substance: HALOPERIDOL
  17. TYLENOL [Concomitant]
     Active Substance: ACETAMINOPHEN

REACTIONS (2)
  - Blood alkaline phosphatase increased [None]
  - Aspartate aminotransferase increased [None]

NARRATIVE: CASE EVENT DATE: 19990508
